FAERS Safety Report 16964555 (Version 2)
Quarter: 2019Q4

REPORT INFORMATION
  Report Type: Spontaneous
  Country: GB (occurrence: GB)
  Receive Date: 20191028
  Receipt Date: 20191205
  Transmission Date: 20200122
  Serious: Yes (Hospitalization, Other)
  Sender: FDA-Public Use
  Company Number: ALC2019GB001158

PATIENT

DRUGS (1)
  1. TROPICAMIDE. [Suspect]
     Active Substance: TROPICAMIDE
     Indication: PRODUCT USED FOR UNKNOWN INDICATION
     Dosage: 1 DRP (1/12 MILLILITRE)
     Route: 047

REACTIONS (1)
  - Blindness [Recovered/Resolved]

NARRATIVE: CASE EVENT DATE: 20190718
